FAERS Safety Report 7202675-0 (Version None)
Quarter: 2010Q4

REPORT INFORMATION
  Report Type: 
  Country: None (occurrence: None)
  Receive Date: 20101229
  Receipt Date: 20101219
  Transmission Date: 20110411
  Serious: Yes (Death, Other)
  Sender: FDA-Public Use
  Company Number: GB-ACTELION-A-CH2010-42897

PATIENT
  Sex: Female

DRUGS (1)
  1. BOSENTAN TABLET UNK MG DUO EU [Suspect]
     Indication: SKIN ULCER
     Dosage: UNK , UNK
     Route: 048
     Dates: start: 20071108, end: 20090501

REACTIONS (3)
  - CARDIAC FAILURE [None]
  - CARDIAC VALVE DISEASE [None]
  - DEATH [None]
